FAERS Safety Report 17165276 (Version 2)
Quarter: 2020Q4

REPORT INFORMATION
  Report Type: Spontaneous
  Country: CA (occurrence: CA)
  Receive Date: 20191217
  Receipt Date: 20201203
  Transmission Date: 20210113
  Serious: Yes (Other)
  Sender: FDA-Public Use
  Company Number: CA-PFIZER INC-2018386476

PATIENT
  Age: 45 Year
  Sex: Male

DRUGS (4)
  1. SUTENT [Suspect]
     Active Substance: SUNITINIB MALATE
     Dosage: 37.5 MG, CYCLIC (ON A 2-WEEKS ON, 1-WEEK OFF)
     Dates: start: 201809, end: 201910
  2. SUTENT [Suspect]
     Active Substance: SUNITINIB MALATE
     Dosage: 25 MG, UNK
     Dates: start: 201809, end: 201809
  3. TECTA [Concomitant]
     Active Substance: PANTOPRAZOLE MAGNESIUM
     Indication: GASTROOESOPHAGEAL REFLUX DISEASE
     Dosage: 40 MG, DAILY
     Route: 048
  4. SUTENT [Suspect]
     Active Substance: SUNITINIB MALATE
     Dosage: 50 MG, CYCLIC (DAILY X 2 WEEKS ON, THEN 1 WEEK OFF)
     Route: 048
     Dates: start: 20180928, end: 201809

REACTIONS (4)
  - Hepatic necrosis [Unknown]
  - Influenza [Unknown]
  - Neoplasm progression [Unknown]
  - Liver disorder [Unknown]

NARRATIVE: CASE EVENT DATE: 201809
